FAERS Safety Report 9580899 (Version 2)
Quarter: 2013Q4

REPORT INFORMATION
  Report Type: Report from Study
  Country: PT (occurrence: PT)
  Receive Date: 20131002
  Receipt Date: 20131004
  Transmission Date: 20140711
  Serious: Yes (Hospitalization)
  Sender: FDA-Public Use
  Company Number: PT-ROCHE-1281018

PATIENT
  Age: 50 Year
  Sex: Male

DRUGS (5)
  1. RIBAVIRIN [Suspect]
     Indication: HEPATITIS C
     Route: 048
     Dates: start: 20130110, end: 20130624
  2. PEGINTRON [Suspect]
     Indication: HEPATITIS C
     Route: 058
     Dates: start: 20130110, end: 20130522
  3. SERTRALINE [Concomitant]
     Indication: DEPRESSION
     Route: 048
     Dates: start: 20121122
  4. METHADONE [Concomitant]
     Route: 048
  5. CALCITRIOL [Concomitant]
     Indication: HEPATITIS C
     Route: 048
     Dates: start: 20130110, end: 20130624

REACTIONS (3)
  - Septic shock [Unknown]
  - Lung abscess [Unknown]
  - Sepsis [Recovered/Resolved]
